FAERS Safety Report 10563171 (Version 2)
Quarter: 2014Q4

REPORT INFORMATION
  Report Type: Spontaneous
  Country: US (occurrence: US)
  Receive Date: 20141104
  Receipt Date: 20141104
  Transmission Date: 20150529
  Serious: Yes (Hospitalization, Other)
  Sender: FDA-Public Use
  Company Number: US-GLAXOSMITHKLINE-B0696950A

PATIENT
  Sex: Female

DRUGS (1)
  1. AVANDIA [Suspect]
     Active Substance: ROSIGLITAZONE MALEATE
     Indication: DIABETES MELLITUS
     Dosage: 8 MG, QD
     Route: 048
     Dates: start: 200403, end: 200804

REACTIONS (6)
  - Atrial fibrillation [Unknown]
  - Bundle branch block right [Unknown]
  - Cardiac failure congestive [Not Recovered/Not Resolved]
  - Supraventricular tachycardia [Unknown]
  - Atrial flutter [Unknown]
  - Pleural effusion [Unknown]
